FAERS Safety Report 20088042 (Version 1)
Quarter: 2021Q4

REPORT INFORMATION
  Report Type: Report from Study
  Country: FR (occurrence: FR)
  Receive Date: 20211118
  Receipt Date: 20211118
  Transmission Date: 20220303
  Serious: Yes (Hospitalization)
  Sender: FDA-Public Use
  Company Number: FR-ABBVIE-21P-056-4167869-00

PATIENT
  Age: 26 Year
  Sex: Female
  Weight: 55 kg

DRUGS (2)
  1. VENETOCLAX [Suspect]
     Active Substance: VENETOCLAX
     Indication: Acute myeloid leukaemia
     Dosage: 8 DAYS
     Route: 048
     Dates: start: 20211012, end: 20211019
  2. CYTARABINE [Concomitant]
     Active Substance: CYTARABINE
     Indication: Product used for unknown indication
     Dosage: 1.5 G/MA/12 H (2 INFUSIONS IN 24 HOURS) ON DAY 1, DAY 3, DAY 5 IN SLOW IV (2 HOURS)
     Route: 042
     Dates: start: 20211012, end: 20211016

REACTIONS (2)
  - Haemodynamic instability [Unknown]
  - Septic shock [Unknown]

NARRATIVE: CASE EVENT DATE: 20211025
